FAERS Safety Report 11112044 (Version 1)
Quarter: 2015Q2

REPORT INFORMATION
  Report Type: Spontaneous
  Country: US (occurrence: None)
  Receive Date: 20150513
  Receipt Date: 20150513
  Transmission Date: 20150821
  Serious: Yes (Other)
  Sender: FDA-Public Use
  Company Number: None

PATIENT
  Age: 87 Year
  Sex: Male

DRUGS (1)
  1. XTANDI [Suspect]
     Active Substance: ENZALUTAMIDE
     Indication: PROSTATE CANCER
     Dosage: STRENGTH:  40MG, DOSE FORM: ORAL, FREQUENCY: 4 CPAS BID, ROUTE: ORAL 047
     Route: 048
     Dates: start: 201502

REACTIONS (5)
  - Swelling [None]
  - Hot flush [None]
  - Insomnia [None]
  - Fatigue [None]
  - Dyspnoea [None]

NARRATIVE: CASE EVENT DATE: 20150511
